FAERS Safety Report 13238432 (Version 3)
Quarter: 2017Q2

REPORT INFORMATION
  Report Type: Report from Study
  Country: CA (occurrence: CA)
  Receive Date: 20170216
  Receipt Date: 20170519
  Transmission Date: 20170830
  Serious: Yes (Hospitalization, Other)
  Sender: FDA-Public Use
  Company Number: CA-ROCHE-1877056

PATIENT
  Age: 61 Year
  Sex: Female

DRUGS (9)
  1. FEMARA [Concomitant]
     Active Substance: LETROZOLE
  2. METHOTREXATE. [Concomitant]
     Active Substance: METHOTREXATE
  3. ROSUVASTATIN TEVA [Concomitant]
     Active Substance: ROSUVASTATIN
  4. ACETYLSALICYLIC ACID [Concomitant]
     Active Substance: ASPIRIN
  5. DIAMICRON [Concomitant]
     Active Substance: GLICLAZIDE
  6. METFORMIN [Concomitant]
     Active Substance: METFORMIN HYDROCHLORIDE
  7. ACTEMRA [Suspect]
     Active Substance: TOCILIZUMAB
     Indication: RHEUMATOID ARTHRITIS
     Dosage: ON HOLD
     Route: 058
     Dates: start: 20161207
  8. TOLOXIN (CANADA) [Concomitant]
  9. APO-RISEDRONATE [Concomitant]
     Active Substance: RISEDRONATE SODIUM

REACTIONS (6)
  - Mastitis [Unknown]
  - Cardiac disorder [Not Recovered/Not Resolved]
  - Tachycardia [Not Recovered/Not Resolved]
  - Hypotension [Not Recovered/Not Resolved]
  - Heart valve incompetence [Not Recovered/Not Resolved]
  - Acute pulmonary oedema [Not Recovered/Not Resolved]

NARRATIVE: CASE EVENT DATE: 20170105
